FAERS Safety Report 4974535-7 (Version None)
Quarter: 2006Q2

REPORT INFORMATION
  Report Type: 
  Country: None (occurrence: None)
  Receive Date: 20060410
  Receipt Date: 20060328
  Transmission Date: 20061013
  Serious: Yes (Death, Hospitalization)
  Sender: FDA-Public Use
  Company Number: 2006043348

PATIENT
  Age: 78 Year
  Sex: Male
  Weight: 42 kg

DRUGS (5)
  1. XALATAN [Suspect]
     Indication: GLAUCOMA
     Dosage: 1.5 MCG (1.5 MCG, 1 IN 1 D), OPHTHALMIC
     Route: 047
     Dates: start: 20040401, end: 20060223
  2. AMIODARONE HYDROCHLORIDE [Concomitant]
  3. DIGOXIN [Concomitant]
  4. FUROSEMIDE [Concomitant]
  5. OXYGEN (OXYGEN) [Concomitant]

REACTIONS (1)
  - PNEUMONIA [None]
